FAERS Safety Report 18155920 (Version 4)
Quarter: 2020Q4

REPORT INFORMATION
  Report Type: Report from Study
  Country: JP (occurrence: JP)
  Receive Date: 20200817
  Receipt Date: 20201209
  Transmission Date: 20210113
  Serious: Yes (Hospitalization, Other)
  Sender: FDA-Public Use
  Company Number: JP-ASTELLAS-2019JP016412

PATIENT
  Age: 50 Year
  Sex: Female
  Weight: 39 kg

DRUGS (21)
  1. ASP2215 [Suspect]
     Active Substance: GILTERITINIB
     Route: 048
     Dates: start: 20190911, end: 20191009
  2. PROGRAF [Concomitant]
     Active Substance: TACROLIMUS
     Indication: PRODUCT USED FOR UNKNOWN INDICATION
     Dosage: UNK UNK, UNKNOWN FREQ.
     Route: 065
  3. VORICONAZOLE. [Suspect]
     Active Substance: VORICONAZOLE
     Indication: PRODUCT USED FOR UNKNOWN INDICATION
     Dosage: UNK UNK, UNKNOWN FREQ.
     Route: 048
  4. FLUCONAZOLE. [Concomitant]
     Active Substance: FLUCONAZOLE
     Indication: PRODUCT USED FOR UNKNOWN INDICATION
     Dosage: UNK UNK, UNKNOWN FREQ.
     Route: 048
  5. METHOTREXATE. [Concomitant]
     Active Substance: METHOTREXATE
     Indication: ACUTE MYELOID LEUKAEMIA REFRACTORY
     Dosage: 15 MG/DAY, UNKNOWN FREQ.
     Route: 028
     Dates: start: 20190514, end: 20190514
  6. ASP2215 [Suspect]
     Active Substance: GILTERITINIB
     Route: 048
     Dates: start: 20190704, end: 20190722
  7. CYLOCIDE [Concomitant]
     Active Substance: CYTARABINE
     Dosage: 40 MG/DAY, UNKNOWN FREQ.
     Route: 028
     Dates: start: 20190517, end: 20190517
  8. CYCLOPHOSPHAMIDE. [Concomitant]
     Active Substance: CYCLOPHOSPHAMIDE
     Indication: PRODUCT USED FOR UNKNOWN INDICATION
     Dosage: UNK UNK, UNKNOWN FREQ.
     Route: 065
  9. METHOTREXATE. [Concomitant]
     Active Substance: METHOTREXATE
     Dosage: 15 MG/DAY, UNKNOWN FREQ.
     Route: 028
     Dates: start: 20190517, end: 20190517
  10. CYLOCIDE [Concomitant]
     Active Substance: CYTARABINE
     Dosage: 40 MG/DAY, UNKNOWN FREQ.
     Route: 028
     Dates: start: 20190627, end: 20190627
  11. VFEND [Concomitant]
     Active Substance: VORICONAZOLE
     Indication: PROPHYLAXIS
     Dosage: 300 MG/DAY, UNKNOWN FREQ.
     Route: 048
     Dates: start: 20190509, end: 20190627
  12. METHOTREXATE. [Concomitant]
     Active Substance: METHOTREXATE
     Dosage: 15 MG/DAY, UNKNOWN FREQ.
     Route: 028
     Dates: start: 20190627, end: 20190627
  13. METHOTREXATE. [Concomitant]
     Active Substance: METHOTREXATE
     Dosage: 15 MG/DAY, UNKNOWN FREQ.
     Route: 028
     Dates: start: 20190606, end: 20190606
  14. CYLOCIDE [Concomitant]
     Active Substance: CYTARABINE
     Dosage: 40 MG/DAY, UNKNOWN FREQ.
     Route: 028
     Dates: start: 20190613, end: 20190613
  15. CYTARABINE. [Concomitant]
     Active Substance: CYTARABINE
     Indication: PRODUCT USED FOR UNKNOWN INDICATION
     Dosage: UNK UNK, UNKNOWN FREQ.
     Route: 065
  16. METHOTREXATE. [Concomitant]
     Active Substance: METHOTREXATE
     Indication: PRODUCT USED FOR UNKNOWN INDICATION
     Dosage: UNK UNK, UNKNOWN FREQ.
     Route: 065
  17. ASP2215 [Suspect]
     Active Substance: GILTERITINIB
     Indication: ACUTE MYELOID LEUKAEMIA REFRACTORY
     Route: 048
     Dates: start: 20190614, end: 20190703
  18. METHOTREXATE. [Concomitant]
     Active Substance: METHOTREXATE
     Dosage: 15 MG/DAY, UNKNOWN FREQ.
     Route: 028
     Dates: start: 20190613, end: 20190613
  19. CYLOCIDE [Concomitant]
     Active Substance: CYTARABINE
     Indication: ACUTE MYELOID LEUKAEMIA REFRACTORY
     Dosage: 40 MG/DAY, UNKNOWN FREQ.
     Route: 028
     Dates: start: 20190514, end: 20190514
  20. ASP2215 [Suspect]
     Active Substance: GILTERITINIB
     Route: 048
     Dates: start: 20191010
  21. CYLOCIDE [Concomitant]
     Active Substance: CYTARABINE
     Dosage: 40 MG/DAY, UNKNOWN FREQ.
     Route: 028
     Dates: start: 20190606, end: 20190606

REACTIONS (4)
  - Myelosuppression [Recovering/Resolving]
  - Off label use [Unknown]
  - Hepatic function abnormal [Recovered/Resolved]
  - Feeling abnormal [Unknown]

NARRATIVE: CASE EVENT DATE: 20190703
